FAERS Safety Report 14802572 (Version 1)
Quarter: 2018Q2

REPORT INFORMATION
  Report Type: Report from Study
  Country: US (occurrence: US)
  Receive Date: 20180424
  Receipt Date: 20180424
  Transmission Date: 20180711
  Serious: Yes (Hospitalization)
  Sender: FDA-Public Use
  Company Number: US-ACTELION-A-NJ2018-170996

PATIENT
  Age: 25 Year
  Sex: Male

DRUGS (2)
  1. VELETRI [Suspect]
     Active Substance: EPOPROSTENOL
     Indication: PULMONARY ARTERIAL HYPERTENSION
     Route: 042
  2. OPSUMIT [Suspect]
     Active Substance: MACITENTAN
     Indication: PULMONARY ARTERIAL HYPERTENSION
     Dosage: 10 MG, QD
     Route: 048
     Dates: start: 20151106

REACTIONS (8)
  - Catheter removal [Unknown]
  - Anxiety [Unknown]
  - Catheter management [Unknown]
  - Catheter site pruritus [Unknown]
  - Thrombosis in device [Unknown]
  - Catheter site erythema [Unknown]
  - Complication associated with device [Unknown]
  - Catheter site rash [Unknown]

NARRATIVE: CASE EVENT DATE: 20180315
